FAERS Safety Report 7330666-8 (Version None)
Quarter: 2011Q1

REPORT INFORMATION
  Report Type: 
  Country: None (occurrence: None)
  Receive Date: 20110225
  Receipt Date: 20110225
  Transmission Date: 20110831
  Serious: Yes (Life-Threatening)
  Sender: FDA-Public Use
  Company Number: None

PATIENT
  Age: 74 Year
  Sex: Male
  Weight: 73.9363 kg

DRUGS (1)
  1. ACTOS [Suspect]
     Indication: TYPE 2 DIABETES MELLITUS
     Dosage: 1 1 PER DAY PO
     Route: 048
     Dates: start: 20051114, end: 20100815

REACTIONS (3)
  - BLADDER CANCER [None]
  - BLOOD URINE PRESENT [None]
  - CYST [None]
